FAERS Safety Report 23016182 (Version 2)
Quarter: 2023Q4

REPORT INFORMATION
  Report Type: Spontaneous
  Country: US (occurrence: US)
  Receive Date: 20231002
  Receipt Date: 20231017
  Transmission Date: 20240110
  Serious: Yes (Hospitalization)
  Sender: FDA-Public Use
  Company Number: US-IGSA-BIG0025964

PATIENT
  Sex: Female

DRUGS (15)
  1. GAMUNEX-C [Suspect]
     Active Substance: HUMAN IMMUNOGLOBULIN G
     Indication: Osteoarthritis
     Dosage: 10 GRAM, Q.WK.
     Route: 058
     Dates: start: 20220518
  2. GAMUNEX-C [Suspect]
     Active Substance: HUMAN IMMUNOGLOBULIN G
     Indication: Off label use
  3. PROLIA [Concomitant]
     Active Substance: DENOSUMAB
  4. OZEMPIC [Concomitant]
     Active Substance: SEMAGLUTIDE
  5. LEVAQUIN [Concomitant]
     Active Substance: LEVOFLOXACIN
  6. CEFACLOR [Concomitant]
     Active Substance: CEFACLOR
  7. LEVOFLOXACIN [Concomitant]
     Active Substance: LEVOFLOXACIN
  8. PREDNISONE [Concomitant]
     Active Substance: PREDNISONE
  9. AMOXICILLIN [Concomitant]
     Active Substance: AMOXICILLIN
  10. CLINDAMYCIN [Concomitant]
     Active Substance: CLINDAMYCIN
     Dosage: 300 MILLIGRAM
  11. ACETAMINOPHEN [Concomitant]
     Active Substance: ACETAMINOPHEN
  12. DIPHENHYDRAMINE [Concomitant]
     Active Substance: DIPHENHYDRAMINE
  13. EPINEPHRINE [Concomitant]
     Active Substance: EPINEPHRINE
  14. LIDOCAINE [Concomitant]
     Active Substance: LIDOCAINE
  15. LMX 4 [Concomitant]

REACTIONS (1)
  - Pneumonia aspiration [Recovered/Resolved]
